FAERS Safety Report 13664239 (Version 1)
Quarter: 2017Q2

REPORT INFORMATION
  Report Type: Report from Study
  Country: DE (occurrence: DE)
  Receive Date: 20170619
  Receipt Date: 20170619
  Transmission Date: 20170830
  Serious: Yes (Hospitalization)
  Sender: FDA-Public Use
  Company Number: DE-TEVA-749039GER

PATIENT
  Age: 27 Year
  Sex: Female

DRUGS (3)
  1. COPAXONE [Suspect]
     Active Substance: GLATIRAMER ACETATE
     Indication: MULTIPLE SCLEROSIS
     Route: 058
     Dates: start: 20160602, end: 20170315
  2. ZIRKADIN 2 MG [Concomitant]
  3. L-THYROXINE 100 MCG [Concomitant]

REACTIONS (3)
  - Sjogren^s syndrome [Recovering/Resolving]
  - Fluid retention [Not Recovered/Not Resolved]
  - Hypersensitivity vasculitis [Recovering/Resolving]

NARRATIVE: CASE EVENT DATE: 20170101
